FAERS Safety Report 13946623 (Version 2)
Quarter: 2017Q4

REPORT INFORMATION
  Report Type: Report from Study
  Country: CO (occurrence: CO)
  Receive Date: 20170907
  Receipt Date: 20171121
  Transmission Date: 20180320
  Serious: Yes (Hospitalization)
  Sender: FDA-Public Use
  Company Number: PHHY2017CO074102

PATIENT
  Age: 55 Year
  Sex: Male
  Weight: 98 kg

DRUGS (1)
  1. ENTRESTO [Suspect]
     Active Substance: SACUBITRIL\VALSARTAN
     Indication: CARDIAC FAILURE
     Dosage: 100 MG, Q12H
     Route: 048
     Dates: start: 20170318

REACTIONS (6)
  - Pain in extremity [Unknown]
  - Decreased appetite [Unknown]
  - Abdominal discomfort [Unknown]
  - Swelling [Unknown]
  - Agitation [Unknown]
  - Inflammation [Unknown]

NARRATIVE: CASE EVENT DATE: 20170511
